FAERS Safety Report 5900226-1 (Version None)
Quarter: 2008Q3

REPORT INFORMATION
  Report Type: 
  Country: None (occurrence: None)
  Receive Date: 20080926
  Receipt Date: 20080923
  Transmission Date: 20090109
  Serious: Yes (Other)
  Sender: FDA-Public Use
  Company Number: DE-JNJFOC-20080904306

PATIENT
  Age: 32 Year
  Sex: Female

DRUGS (5)
  1. IMODIUM AD [Suspect]
     Route: 048
  2. IMODIUM AD [Suspect]
     Indication: DIARRHOEA
     Route: 048
  3. OMEPRAZOLE [Concomitant]
  4. BETA BLOCKER [Concomitant]
     Indication: TACHYCARDIA
  5. FLUDROCORTISONE ACETATE [Concomitant]
     Indication: HYPOTENSION

REACTIONS (2)
  - ARRHYTHMIA [None]
  - HYPOTENSION [None]
